FAERS Safety Report 10541353 (Version 1)
Quarter: 2014Q4

REPORT INFORMATION
  Report Type: Spontaneous
  Country: US (occurrence: None)
  Receive Date: 20141010
  Receipt Date: 20141010
  Transmission Date: 20150529
  Serious: No
  Sender: FDA-Public Use
  Company Number: 163-POMAL-14074055

PATIENT
  Age: 65 Year
  Sex: Female
  Weight: 65.8 kg

DRUGS (12)
  1. FLUOXETINE HCL [Concomitant]
     Active Substance: FLUOXETINE HYDROCHLORIDE
  2. CLOTRIMAZOLE (CLOTRIMAZOLE) [Concomitant]
  3. AMPHETAMINE SALT COMBO (OBETROL) (UNKNOWN) [Concomitant]
  4. AZITHROMYCIN (AZITHROMYCIN) (UNKNOWN) [Concomitant]
  5. POMALYST [Suspect]
     Active Substance: POMALIDOMIDE
     Indication: PLASMA CELL MYELOMA
     Dosage: 2 MG, 1 IN 1 D, PO?
     Route: 048
     Dates: start: 20130523
  6. VALACYCLOVIR (VALACICLOVIR HYDROCHLORIDE) (UNKNOWN) [Concomitant]
  7. AMLODIPINE BESYLATE (AMLODIPINE  BESILATE) (UNKNOWN) [Concomitant]
  8. DEXAMETHASONE (DEXAMETHASONE) (UNKNOWN) [Concomitant]
     Active Substance: DEXAMETHASONE
  9. OMEPRAZOLE (OMEPRAZOLE) (UNKNOWN) [Concomitant]
  10. ADVAIR DISKUS (SERETIDE MITE) (UNKNOWN) [Concomitant]
  11. PREDNISONE (PREDNISONE) [Concomitant]
     Active Substance: PREDNISONE
  12. CYCLOPHOSPHAMIDE (CYCLOPHOSPHAMIDE) (UNKNOWN) (CYCLOPHOSAPHAMIDE) [Concomitant]
     Active Substance: CYCLOPHOSPHAMIDE

REACTIONS (1)
  - Oral candidiasis [None]

NARRATIVE: CASE EVENT DATE: 201407
